FAERS Safety Report 21762626 (Version 1)
Quarter: 2022Q4

REPORT INFORMATION
  Report Type: Spontaneous
  Country: FR (occurrence: FR)
  Receive Date: 20221221
  Receipt Date: 20221221
  Transmission Date: 20230112
  Serious: Yes (Life-Threatening, Hospitalization, Disabling)
  Sender: FDA-Public Use
  Company Number: FR-002147023-NVSC2022FR237344

PATIENT
  Sex: Male

DRUGS (12)
  1. MORPHINE SULFATE [Suspect]
     Active Substance: MORPHINE SULFATE
     Indication: Product used for unknown indication
     Dosage: UNK
     Route: 065
  2. BROMAZEPAM [Suspect]
     Active Substance: BROMAZEPAM
     Indication: Anxiety disorder
     Dosage: UNK
     Route: 065
     Dates: start: 2018
  3. BROMAZEPAM [Suspect]
     Active Substance: BROMAZEPAM
     Dosage: 6 DOSAGE FORM, QD
     Route: 048
     Dates: end: 20221005
  4. BROMAZEPAM [Suspect]
     Active Substance: BROMAZEPAM
     Dosage: UNK
     Route: 048
     Dates: start: 20220927, end: 20220928
  5. OXAZEPAM [Concomitant]
     Active Substance: OXAZEPAM
     Indication: Product used for unknown indication
     Dosage: 300 MG, QD
     Route: 065
  6. KETAMINE [Concomitant]
     Active Substance: KETAMINE
     Indication: Hyperaesthesia
     Dosage: UNK (AFTER INTUBATION FOR RESPIRATORY FAILURE) VIA ROUTE INJECTION NOT OTHERWISE SPECIFIED
     Route: 065
     Dates: start: 202209, end: 202209
  7. KETAMINE [Concomitant]
     Active Substance: KETAMINE
     Dosage: 0.5 MG/KG (INJECTION BY ELECTRIC SYRINGE OF  0.5 MG/KG OVER 4 HOURS)
     Route: 065
     Dates: start: 20220926, end: 20220927
  8. OXYCODONE HYDROCHLORIDE [Concomitant]
     Active Substance: OXYCODONE HYDROCHLORIDE
     Indication: Arthralgia
     Dosage: 5 DOSAGE FORM, QD
     Route: 048
     Dates: start: 2018, end: 2022
  9. FLUMAZENIL [Concomitant]
     Active Substance: FLUMAZENIL
     Indication: Product used for unknown indication
     Dosage: UNK (ANEXATE IN A SYRINGE PUMP WOKE UP THE PATIENT)
     Route: 042
  10. OXYCONTIN [Concomitant]
     Active Substance: OXYCODONE HYDROCHLORIDE
     Indication: Arthralgia
     Dosage: 12 DOSAGE FORM, QD (30)
     Route: 048
     Dates: start: 2018, end: 2022
  11. ZOPICLONE [Concomitant]
     Active Substance: ZOPICLONE
     Indication: Product used for unknown indication
     Dosage: 1 DOSAGE FORM, QN (7.5)
     Route: 065
  12. OXAZEPAM [Concomitant]
     Active Substance: OXAZEPAM
     Indication: Product used for unknown indication
     Dosage: 300 MG, QD
     Route: 065
     Dates: start: 20221005

REACTIONS (6)
  - Respiratory failure [Recovered/Resolved]
  - Withdrawal syndrome [Recovered/Resolved]
  - Intentional product misuse [Recovered/Resolved]
  - Overdose [Recovered/Resolved]
  - Hypertension [Unknown]
  - Somnolence [Unknown]

NARRATIVE: CASE EVENT DATE: 20180101
